FAERS Safety Report 4451115-3 (Version None)
Quarter: 2004Q3

REPORT INFORMATION
  Report Type: 
  Country: None (occurrence: None)
  Receive Date: 20040913
  Receipt Date: 20040615
  Transmission Date: 20050211
  Serious: No
  Sender: FDA-Public Use
  Company Number: 2004-BP-04837BP(0)

PATIENT
  Age: 68 Year
  Sex: Male
  Weight: 71.7 kg

DRUGS (7)
  1. SPIRIVA [Suspect]
     Indication: CHRONIC OBSTRUCTIVE AIRWAYS DISEASE
     Dosage: 18 MCG (18 MCG), IH
     Dates: start: 20040524, end: 20040615
  2. COUMADIN [Concomitant]
  3. PAXIL [Concomitant]
  4. CARDIZEM [Concomitant]
  5. BACTRIM DS [Concomitant]
  6. ZOCOR [Concomitant]
  7. VASOTEC [Concomitant]

REACTIONS (1)
  - SWELLING FACE [None]
